FAERS Safety Report 4450448-4 (Version None)
Quarter: 2004Q3

REPORT INFORMATION
  Report Type: 
  Country: None (occurrence: None)
  Receive Date: 20040802
  Receipt Date: 20040219
  Transmission Date: 20050211
  Serious: Yes (Hospitalization)
  Sender: FDA-Public Use
  Company Number: US-SHR-04-021441

PATIENT
  Sex: 0

DRUGS (1)
  1. MAGNEVIST [Suspect]
     Dates: start: 20040201, end: 20040201

REACTIONS (2)
  - DYSPNOEA [None]
  - RESPIRATORY DISORDER [None]
